FAERS Safety Report 7759190-5 (Version None)
Quarter: 2011Q3

REPORT INFORMATION
  Report Type: 
  Country: None (occurrence: None)
  Receive Date: 20110919
  Receipt Date: 20110908
  Transmission Date: 20111222
  Serious: Yes (Death, Life-Threatening, Hospitalization)
  Sender: FDA-Public Use
  Company Number: US-CELGENEUS-163-21880-11070495

PATIENT
  Sex: Female
  Weight: 77.634 kg

DRUGS (9)
  1. GABAPENTIN [Concomitant]
     Dosage: 600 MILLIGRAM
     Route: 048
  2. ALLOPURINOL [Concomitant]
     Dosage: 300 MILLIGRAM
     Route: 048
  3. PLATELETS [Concomitant]
     Route: 041
     Dates: start: 20110611, end: 20110703
  4. WARFARIN SODIUM [Concomitant]
     Dosage: 5MG ALTERNATING WITH 7.5MG
     Route: 048
  5. DEXAMETHASONE [Concomitant]
     Dosage: 20 MILLIGRAM
     Route: 048
  6. NPH INSULIN [Concomitant]
     Dosage: 20 UNITS - 10 UNITS
     Route: 058
  7. REVLIMID [Suspect]
     Dosage: 25 MILLIGRAM
     Route: 048
     Dates: start: 20110314, end: 20110611
  8. BORTEZOMIB [Concomitant]
     Dosage: 2.6 MILLIGRAM
     Route: 041
     Dates: end: 20110601
  9. ACYCLOVIR [Concomitant]
     Dosage: 400 MILLIGRAM
     Route: 048

REACTIONS (3)
  - HAEMOTHORAX [None]
  - RESPIRATORY FAILURE [None]
  - LEUKAEMIA PLASMACYTIC [None]
